FAERS Safety Report 4664176-3 (Version None)
Quarter: 2005Q2

REPORT INFORMATION
  Report Type: 
  Country: None (occurrence: None)
  Receive Date: 20050516
  Receipt Date: 20050516
  Transmission Date: 20051028
  Serious: No
  Sender: FDA-Public Use
  Company Number: None

PATIENT
  Sex: Female
  Weight: 70.3075 kg

DRUGS (5)
  1. METFORMIN HCL EXTENDED RELEASE [Suspect]
     Indication: DIABETES MELLITUS NON-INSULIN-DEPENDENT
     Dosage: 500 MG  2X /DAY ORAL
     Route: 048
     Dates: start: 20040901, end: 20041231
  2. BACTRIM [Suspect]
     Indication: URINARY TRACT INFECTION
     Dosage: DON'T REMEMBER  ORAL
     Route: 048
     Dates: start: 20040915, end: 20040917
  3. OINTMENTS [Concomitant]
  4. ANTI-HISTAMINE TAB [Concomitant]
  5. CORTOSONE [Concomitant]

REACTIONS (2)
  - DRUG EFFECT DECREASED [None]
  - THERAPEUTIC RESPONSE UNEXPECTED WITH DRUG SUBSTITUTION [None]
